FAERS Safety Report 7632106-8 (Version None)
Quarter: 2011Q3

REPORT INFORMATION
  Report Type: 
  Country: None (occurrence: None)
  Receive Date: 20110725
  Receipt Date: 20110725
  Transmission Date: 20111222
  Serious: Yes (Hospitalization)
  Sender: FDA-Public Use
  Company Number: None

PATIENT
  Age: 58 Year
  Sex: Male

DRUGS (1)
  1. IODIXANOL [Suspect]
     Indication: CATHETERISATION CARDIAC
     Dosage: 170 ML
     Route: 013
     Dates: start: 20110711, end: 20110711

REACTIONS (3)
  - PRURITUS [None]
  - RASH GENERALISED [None]
  - CONTRAST MEDIA REACTION [None]
